FAERS Safety Report 22000971 (Version 1)
Quarter: 2023Q1

REPORT INFORMATION
  Report Type: Spontaneous
  Country: US (occurrence: US)
  Receive Date: 20230216
  Receipt Date: 20230216
  Transmission Date: 20230417
  Serious: No
  Sender: FDA-Public Use
  Company Number: US-FERRINGPH-2022FE00576

PATIENT
  Sex: Male

DRUGS (1)
  1. NOCDURNA [Suspect]
     Active Substance: DESMOPRESSIN ACETATE
     Indication: Polyuria
     Dosage: 27.7 UG, 2 TIMES DAILY ONE IN AM AND ONE A NIGHT
     Route: 060

REACTIONS (4)
  - Off label use [Unknown]
  - Product use issue [Unknown]
  - Product use issue [Unknown]
  - Drug monitoring procedure not performed [Unknown]
